FAERS Safety Report 6272036-X (Version None)
Quarter: 2009Q3

REPORT INFORMATION
  Report Type: 
  Country: None (occurrence: None)
  Receive Date: 20090717
  Receipt Date: 20090707
  Transmission Date: 20100115
  Serious: Yes (Hospitalization)
  Sender: FDA-Public Use
  Company Number: A0790495A

PATIENT
  Sex: Female

DRUGS (6)
  1. AVANDIA [Suspect]
     Indication: DIABETES MELLITUS
     Dosage: 4MG PER DAY
     Route: 048
  2. DARVOCET-N 100 [Concomitant]
  3. GLUCOPHAGE XR [Concomitant]
  4. LISINOPRIL [Concomitant]
  5. HYDROCHLOROTHIAZIDE [Concomitant]
  6. VERAPAMIL [Concomitant]

REACTIONS (2)
  - ANGINA UNSTABLE [None]
  - CORONARY ARTERY DISEASE [None]
